FAERS Safety Report 24309985 (Version 1)
Quarter: 2024Q3

REPORT INFORMATION
  Report Type: Spontaneous
  Country: US (occurrence: US)
  Receive Date: 20240912
  Receipt Date: 20240912
  Transmission Date: 20241016
  Serious: Yes (Hospitalization)
  Sender: STRIDES
  Company Number: None

PATIENT
  Age: 38 Year
  Sex: Female

DRUGS (2)
  1. IBUPROFEN [Suspect]
     Active Substance: IBUPROFEN
     Indication: Analgesic intervention supportive therapy
     Dosage: ON POSTOPERATIVE DAY 1
     Route: 048
  2. KETOROLAC [Suspect]
     Active Substance: KETOROLAC TROMETHAMINE
     Indication: Analgesic intervention supportive therapy
     Dosage: ON POSTOPERATIVE DAY 0, SHE RECEIVED THREE DOSES OF THE NONSTEROIDAL ANTI-INFLAMMATORY DRUG (NSAID)
     Route: 042

REACTIONS (1)
  - Acute kidney injury [Recovering/Resolving]
